FAERS Safety Report 4767506-7 (Version None)
Quarter: 2005Q3

REPORT INFORMATION
  Report Type: 
  Country: None (occurrence: None)
  Receive Date: 20050913
  Receipt Date: 20050829
  Transmission Date: 20060218
  Serious: Yes (Death, Other)
  Sender: FDA-Public Use
  Company Number: JP-SANOFI-SYNTHELABO-F01200501722

PATIENT
  Sex: Male
  Weight: 44 kg

DRUGS (13)
  1. OXALIPLATIN [Suspect]
     Indication: RECTAL CANCER
     Route: 042
     Dates: start: 20050721, end: 20050721
  2. FLUOROURACIL [Suspect]
     Dosage: 550 MG (401.5 MG/M2) IV BOLUS AND 825 MG (602.2 MG/M2) IV CONTINUOUS INFUSION DAYS 1+2, Q2W
     Route: 042
     Dates: start: 20050721, end: 20050722
  3. CALCIUM LEVOFOLINATE [Suspect]
     Route: 042
     Dates: start: 20050721, end: 20050722
  4. SAXIZON [Concomitant]
     Route: 042
     Dates: start: 20050801, end: 20050803
  5. ALBUMINAR [Concomitant]
     Route: 042
     Dates: start: 20050801, end: 20050807
  6. VENOGLOBULIN [Concomitant]
     Route: 042
     Dates: start: 20050806, end: 20050807
  7. ANTITHROMBIN III [Concomitant]
     Route: 042
     Dates: start: 20050806, end: 20050808
  8. ROCEPHIN [Concomitant]
     Route: 042
     Dates: start: 20050806, end: 20050808
  9. FUTHAN [Concomitant]
     Route: 042
     Dates: start: 20050806, end: 20050808
  10. PLATELETS [Concomitant]
     Route: 042
     Dates: start: 20050806, end: 20050806
  11. MANNITOL S [Concomitant]
     Route: 042
     Dates: start: 20050807, end: 20050808
  12. LASIX [Concomitant]
     Route: 042
     Dates: start: 20050807, end: 20050808
  13. DIGILANOGEN C [Concomitant]
     Route: 042
     Dates: start: 20050807, end: 20050808

REACTIONS (20)
  - ABNORMAL BEHAVIOUR [None]
  - ALANINE AMINOTRANSFERASE INCREASED [None]
  - ASPARTATE AMINOTRANSFERASE INCREASED [None]
  - BLOOD CREATININE INCREASED [None]
  - CACHEXIA [None]
  - DECREASED APPETITE [None]
  - DIALYSIS [None]
  - DISORIENTATION [None]
  - DISSEMINATED INTRAVASCULAR COAGULATION [None]
  - DYSPNOEA [None]
  - HAEMOGLOBIN DECREASED [None]
  - MELAENA [None]
  - MULTI-ORGAN FAILURE [None]
  - MUSCLE ATROPHY [None]
  - NAUSEA [None]
  - RENAL FAILURE [None]
  - THROMBOCYTOPENIA [None]
  - TUMOUR LYSIS SYNDROME [None]
  - URINE OUTPUT DECREASED [None]
  - VOMITING [None]
